FAERS Safety Report 19745711 (Version 5)
Quarter: 2022Q1

REPORT INFORMATION
  Report Type: Report from Study
  Country: US (occurrence: US)
  Receive Date: 20210825
  Receipt Date: 20220216
  Transmission Date: 20220423
  Serious: No
  Sender: FDA-Public Use
  Company Number: US-NOVARTISTESTPH-NVSC2021US191982

PATIENT
  Sex: Female
  Weight: 131.52 kg

DRUGS (4)
  1. TREPROSTINIL [Suspect]
     Active Substance: TREPROSTINIL
     Indication: Pulmonary arterial hypertension
     Dosage: 50 UNK, CONT (NG/KG/MIN)
     Route: 058
     Dates: start: 20210722
  2. TREPROSTINIL [Suspect]
     Active Substance: TREPROSTINIL
     Dosage: 50 UNK, CONT (NG/KG/MIN)
     Route: 058
     Dates: start: 20210722
  3. OPSUMIT [Concomitant]
     Active Substance: MACITENTAN
     Indication: Product used for unknown indication
     Dosage: UNK
     Route: 065
  4. SILDENAFIL CITRATE [Concomitant]
     Active Substance: SILDENAFIL CITRATE
     Indication: Product used for unknown indication
     Dosage: UNK
     Route: 065

REACTIONS (6)
  - Swelling [Unknown]
  - Infusion site inflammation [Unknown]
  - Injection site swelling [Unknown]
  - Infusion site abscess [Unknown]
  - Infusion site erythema [Unknown]
  - Infusion site pain [Unknown]
